FAERS Safety Report 6042471-3 (Version None)
Quarter: 2009Q1

REPORT INFORMATION
  Report Type: 
  Country: None (occurrence: None)
  Receive Date: 20090116
  Receipt Date: 20090116
  Transmission Date: 20090719
  Serious: No
  Sender: FDA-Public Use
  Company Number: US-B.I. PHARMACEUTICALS,INC./RIDGEFIELD-2008-BP-06269BP

PATIENT
  Age: 3 Year
  Sex: Female

DRUGS (1)
  1. ATROVENT [Suspect]
     Dates: start: 20080416, end: 20080416

REACTIONS (1)
  - URTICARIA [None]
